FAERS Safety Report 17837278 (Version 1)
Quarter: 2020Q2

REPORT INFORMATION
  Report Type: Spontaneous
  Country: US (occurrence: US)
  Receive Date: 20200528
  Receipt Date: 20200528
  Transmission Date: 20200714
  Serious: No
  Sender: FDA-Public Use
  Company Number: US-TEVA-2020-US-1240019

PATIENT
  Sex: Female

DRUGS (1)
  1. ANASTROZOLE TEVA [Suspect]
     Active Substance: ANASTROZOLE
     Indication: NEOPLASM MALIGNANT
     Route: 048
     Dates: start: 202004

REACTIONS (8)
  - Product storage error [Unknown]
  - Malaise [Unknown]
  - Product physical issue [Unknown]
  - Hot flush [Unknown]
  - Cerebral disorder [Unknown]
  - Abdominal discomfort [Unknown]
  - Condition aggravated [Unknown]
  - Bone disorder [Unknown]
